FAERS Safety Report 8846116 (Version 2)
Quarter: 2012Q4

REPORT INFORMATION
  Report Type: 
  Country: JP (occurrence: JP)
  Receive Date: 20121017
  Receipt Date: 20121119
  Transmission Date: 20130627
  Serious: Yes (Hospitalization)
  Sender: FDA-Public Use
  Company Number: JP-ELI_LILLY_AND_COMPANY-JP201206003983

PATIENT
  Age: 75 Year
  Sex: Female

DRUGS (1)
  1. FORTEO [Suspect]
     Dosage: UNK UNK, each morning
     Route: 058
     Dates: start: 20120508

REACTIONS (4)
  - Back pain [Unknown]
  - Injection site bruising [Unknown]
  - Injection site erythema [Unknown]
  - Musculoskeletal stiffness [Unknown]
